FAERS Safety Report 6368128-7 (Version None)
Quarter: 2009Q3

REPORT INFORMATION
  Report Type: 
  Country: None (occurrence: None)
  Receive Date: 20090922
  Receipt Date: 20090911
  Transmission Date: 20100115
  Serious: Yes (Other)
  Sender: FDA-Public Use
  Company Number: PHEH2009US10862

PATIENT
  Sex: Female

DRUGS (2)
  1. DIOVAN [Suspect]
     Dosage: 320 MG, UNK
  2. DIOVAN [Suspect]
     Dosage: 160 MG, UNK

REACTIONS (7)
  - BLOOD PRESSURE FLUCTUATION [None]
  - BLOOD PRESSURE INCREASED [None]
  - CHEST DISCOMFORT [None]
  - HYPOTENSION [None]
  - PAIN [None]
  - PYREXIA [None]
  - SKIN REACTION [None]
